FAERS Safety Report 15458323 (Version 1)
Quarter: 2018Q3

REPORT INFORMATION
  Report Type: Spontaneous
  Country: US (occurrence: US)
  Receive Date: 20180929
  Receipt Date: 20180929
  Transmission Date: 20181010
  Serious: Yes (Hospitalization, Disabling)
  Sender: FDA-Public Use
  Company Number: None

PATIENT
  Age: 65 Year
  Sex: Male
  Weight: 117 kg

DRUGS (3)
  1. CLONAZEPAM. [Suspect]
     Active Substance: CLONAZEPAM
     Indication: ANXIETY
     Dosage: ?          QUANTITY:1 TABLET(S);?
     Route: 048
     Dates: start: 20180901, end: 20180927
  2. MELITONIN [Concomitant]
  3. PRILASAC [Concomitant]

REACTIONS (5)
  - Product substitution issue [None]
  - Pain [None]
  - Gait inability [None]
  - Pain in extremity [None]
  - Loss of employment [None]

NARRATIVE: CASE EVENT DATE: 20180912
